FAERS Safety Report 9709939 (Version 2)
Quarter: 2013Q4

REPORT INFORMATION
  Report Type: Spontaneous
  Country: US (occurrence: US)
  Receive Date: 20131126
  Receipt Date: 20131205
  Transmission Date: 20140711
  Serious: Yes (Death, Life-Threatening, Hospitalization, Other)
  Sender: FDA-Public Use
  Company Number: US-JNJFOC-20131114866

PATIENT
  Sex: Male
  Weight: 79 kg

DRUGS (2)
  1. XARELTO [Suspect]
     Indication: THROMBOSIS
     Dosage: OVER 1 YEAR
     Route: 048
  2. XARELTO [Suspect]
     Indication: THROMBOSIS
     Dosage: OVER 1 YEAR
     Route: 048

REACTIONS (1)
  - Haemorrhagic stroke [Fatal]
